FAERS Safety Report 6911171-7 (Version None)
Quarter: 2010Q3

REPORT INFORMATION
  Report Type: 
  Country: None (occurrence: None)
  Receive Date: 20100806
  Receipt Date: 20100728
  Transmission Date: 20110219
  Serious: Yes (Life-Threatening, Hospitalization)
  Sender: FDA-Public Use
  Company Number: US-EISAI INC.-E7867-00130-SPO-US

PATIENT
  Sex: Male

DRUGS (1)
  1. GLIADEL [Suspect]
     Indication: GLIOBLASTOMA
     Route: 018
     Dates: start: 20100507, end: 20100604

REACTIONS (4)
  - HYDROCEPHALUS [None]
  - INTRACRANIAL HYPOTENSION [None]
  - WOUND DEHISCENCE [None]
  - WOUND INFECTION [None]
